FAERS Safety Report 21494091 (Version 1)
Quarter: 2022Q4

REPORT INFORMATION
  Report Type: Spontaneous
  Country: None (occurrence: BE)
  Receive Date: 20221021
  Receipt Date: 20221021
  Transmission Date: 20230113
  Serious: Yes (Other)
  Sender: FDA-Public Use
  Company Number: BE-B.Braun Medical Inc.-2134094

PATIENT
  Sex: Female

DRUGS (8)
  1. ACETAMINOPHEN [Suspect]
     Active Substance: ACETAMINOPHEN
  2. TRIMETHOPRIM [Concomitant]
     Active Substance: TRIMETHOPRIM
  3. VITAMIN D [Concomitant]
     Active Substance: VITAMIN D NOS
  4. CEFAZOLIN SODIUM [Suspect]
     Active Substance: CEFAZOLIN SODIUM
  5. SUFENTANIL CITRATE [Suspect]
     Active Substance: SUFENTANIL CITRATE
  6. VANCOMYCIN HYDROCHLORIDE [Suspect]
     Active Substance: VANCOMYCIN HYDROCHLORIDE
  7. PROPOFOL [Suspect]
     Active Substance: PROPOFOL
  8. IBUPROFEN [Suspect]
     Active Substance: IBUPROFEN

REACTIONS (4)
  - Oxygen saturation decreased [Recovered/Resolved]
  - Periorbital swelling [Recovered/Resolved]
  - Angioedema [Recovered/Resolved]
  - Lip swelling [Recovered/Resolved]
